FAERS Safety Report 6976653-0 (Version None)
Quarter: 2010Q3

REPORT INFORMATION
  Report Type: 
  Country: None (occurrence: None)
  Receive Date: 20100910
  Receipt Date: 20090429
  Transmission Date: 20110219
  Serious: No
  Sender: FDA-Public Use
  Company Number: US-WYE-H09150609

PATIENT
  Sex: Female
  Weight: 52.21 kg

DRUGS (4)
  1. DESVENLAFAXINE SUCCINATE MONOHYDRATE [Suspect]
     Indication: DEPRESSION
     Route: 048
     Dates: start: 20090301, end: 20090301
  2. DESVENLAFAXINE SUCCINATE MONOHYDRATE [Suspect]
     Route: 048
     Dates: start: 20090301
  3. LEVOTHYROXINE SODIUM [Suspect]
     Indication: DEPRESSION
     Dosage: UNKNOWN
     Dates: end: 20090428
  4. VITAMINS [Concomitant]

REACTIONS (8)
  - ABDOMINAL PAIN UPPER [None]
  - ACNE [None]
  - ASTHENOPIA [None]
  - DRUG INEFFECTIVE [None]
  - EXOPHTHALMOS [None]
  - FEELING ABNORMAL [None]
  - PAIN [None]
  - TERMINAL INSOMNIA [None]
